FAERS Safety Report 7505890-1 (Version None)
Quarter: 2011Q2

REPORT INFORMATION
  Report Type: 
  Country: None (occurrence: None)
  Receive Date: 20110526
  Receipt Date: 20110518
  Transmission Date: 20111010
  Serious: Yes (Hospitalization, Other)
  Sender: FDA-Public Use
  Company Number: AU-AMGEN-AUSCT2010007286

PATIENT
  Age: 32 Year
  Sex: Female

DRUGS (10)
  1. METOPROLOL TARTRATE [Concomitant]
     Dosage: 25 MG, BID
  2. PANTOPRAZOLE [Concomitant]
  3. CINACALCET HYDROCHLORIDE [Suspect]
     Indication: HYPERPARATHYROIDISM SECONDARY
     Dosage: UNK
  4. LERCANIDIPINE [Concomitant]
     Dosage: 10 MG, UNK
  5. CALTRATE                           /00108001/ [Concomitant]
  6. SEVELAMER [Concomitant]
     Dosage: 800 MG, TID
  7. DOMPERIDONE [Concomitant]
     Dosage: UNK
  8. ANTIHYPERTENSIVES [Concomitant]
     Dosage: UNK
  9. CALCITROL                          /00508501/ [Concomitant]
     Dosage: UNK UNK, TID
  10. SENSIPAR [Suspect]
     Indication: HYPERPARATHYROIDISM SECONDARY
     Dosage: 30 MG, UNK
     Route: 048
     Dates: start: 20101008, end: 20101008

REACTIONS (1)
  - ANXIETY [None]
